FAERS Safety Report 5191508-2 (Version None)
Quarter: 2006Q4

REPORT INFORMATION
  Report Type: 
  Country: None (occurrence: None)
  Receive Date: 20061226
  Receipt Date: 20061201
  Transmission Date: 20070319
  Serious: Yes (Death)
  Sender: FDA-Public Use
  Company Number: NL-SANOFI-SYNTHELABO-F01200602504

PATIENT
  Sex: Male

DRUGS (9)
  1. ZOPICLONE [Concomitant]
  2. OXAZEPAM [Concomitant]
  3. ACETAMINOPHEN [Concomitant]
  4. AMARYL [Concomitant]
  5. METFORMIN HCL [Concomitant]
  6. BEVACIZUMAB [Suspect]
     Route: 041
     Dates: start: 20060713, end: 20060713
  7. CAPECITABINE [Suspect]
     Dosage: DAYS 1-14 (1250 MG/M2 AFTER CYCLE 6) 1800 MG
     Route: 048
     Dates: start: 20060713
  8. OXALIPLATIN [Suspect]
     Indication: COLORECTAL CANCER
     Route: 041
     Dates: start: 20060713, end: 20060713
  9. CETUXIMAB [Suspect]
     Dosage: 400 MG/M2 DAY 1 OF CYCLE 1, THEREAFTER 250 MG/M2 WEEKLY
     Route: 041
     Dates: start: 20060727, end: 20060727

REACTIONS (35)
  - ABDOMINAL MASS [None]
  - ABDOMINAL PAIN LOWER [None]
  - ASTHENIA [None]
  - BACK PAIN [None]
  - BACTERIA URINE IDENTIFIED [None]
  - BLOOD CHLORIDE DECREASED [None]
  - BLOOD CREATININE DECREASED [None]
  - BLOOD LACTIC ACID INCREASED [None]
  - BLOOD SODIUM DECREASED [None]
  - BLOOD UREA DECREASED [None]
  - C-REACTIVE PROTEIN INCREASED [None]
  - CANCER PAIN [None]
  - CARCINOEMBRYONIC ANTIGEN INCREASED [None]
  - DELIRIUM [None]
  - DEPRESSION [None]
  - DISEASE PROGRESSION [None]
  - FATIGUE [None]
  - GENERAL PHYSICAL HEALTH DETERIORATION [None]
  - HAEMOGLOBIN DECREASED [None]
  - HEPATIC LESION [None]
  - HEPATIC STEATOSIS [None]
  - ILEUS [None]
  - LABORATORY TEST ABNORMAL [None]
  - LUNG DISORDER [None]
  - NAUSEA [None]
  - NEUROLOGICAL SYMPTOM [None]
  - PALLOR [None]
  - PALMAR ERYTHEMA [None]
  - PNEUMONIA ASPIRATION [None]
  - STAPHYLOCOCCAL INFECTION [None]
  - THROMBOTIC THROMBOCYTOPENIC PURPURA [None]
  - TRANSIENT ISCHAEMIC ATTACK [None]
  - URINARY TRACT INFECTION FUNGAL [None]
  - VOMITING [None]
  - WEIGHT DECREASED [None]
